FAERS Safety Report 14950603 (Version 1)
Quarter: 2018Q2

REPORT INFORMATION
  Report Type: Spontaneous
  Country: US (occurrence: US)
  Receive Date: 20180508
  Receipt Date: 20180508
  Transmission Date: 20180711
  Serious: No
  Sender: FDA-Public Use
  Company Number: None

PATIENT
  Age: 32 Year
  Sex: Female

DRUGS (1)
  1. CAPECITABINE TAB 500MG [Suspect]
     Active Substance: CAPECITABINE

REACTIONS (5)
  - Weight decreased [None]
  - Dyspnoea [None]
  - Chest pain [None]
  - Headache [None]
  - Constipation [None]

NARRATIVE: CASE EVENT DATE: 20180419
